FAERS Safety Report 12060730 (Version 3)
Quarter: 2016Q1

REPORT INFORMATION
  Report Type: Spontaneous
  Country: JP (occurrence: JP)
  Receive Date: 20160210
  Receipt Date: 20160328
  Transmission Date: 20160526
  Serious: Yes (Hospitalization)
  Sender: FDA-Public Use
  Company Number: JP-ASTRAZENECA-2015SF30935

PATIENT
  Age: 75 Year
  Sex: Female
  Weight: 56 kg

DRUGS (7)
  1. PREDONINE [Suspect]
     Active Substance: PREDNISOLONE\PREDNISOLONE ACETATE\PREDNISOLONE SODIUM SUCCINATE
     Indication: INTERSTITIAL LUNG DISEASE
     Route: 048
     Dates: start: 201508
  2. BAKTAR [Concomitant]
     Active Substance: SULFAMETHOXAZOLE\TRIMETHOPRIM
     Indication: PNEUMONIA
     Route: 048
  3. CRESTOR [Concomitant]
     Active Substance: ROSUVASTATIN CALCIUM
     Indication: DYSLIPIDAEMIA
     Route: 048
  4. ONGLYZA [Suspect]
     Active Substance: SAXAGLIPTIN HYDROCHLORIDE
     Indication: TYPE 2 DIABETES MELLITUS
     Route: 048
     Dates: start: 20151109
  5. FORXIGA [Suspect]
     Active Substance: DAPAGLIFLOZIN
     Indication: TYPE 2 DIABETES MELLITUS
     Route: 048
     Dates: start: 20151109, end: 20151204
  6. EXFORGE [Suspect]
     Active Substance: AMLODIPINE BESYLATE\VALSARTAN
     Indication: HYPERTENSION
     Route: 048
  7. AVELOX [Concomitant]
     Active Substance: MOXIFLOXACIN HYDROCHLORIDE
     Indication: UPPER RESPIRATORY TRACT INFLAMMATION
     Route: 048
     Dates: start: 20151201

REACTIONS (10)
  - Fall [Unknown]
  - Contusion [Unknown]
  - Dizziness [Recovered/Resolved]
  - Dehydration [Recovered/Resolved]
  - Renal impairment [Unknown]
  - Decreased appetite [Unknown]
  - Fluid intake reduced [Unknown]
  - Malaise [Recovered/Resolved]
  - Upper respiratory tract infection [Unknown]
  - Nausea [Recovered/Resolved]

NARRATIVE: CASE EVENT DATE: 20151202
